FAERS Safety Report 6041899-5 (Version None)
Quarter: 2009Q1

REPORT INFORMATION
  Report Type: 
  Country: None (occurrence: None)
  Receive Date: 20090116
  Receipt Date: 20090115
  Transmission Date: 20090719
  Serious: Yes (Life-Threatening)
  Sender: FDA-Public Use
  Company Number: CA-ASTRAZENECA-2009UW01293

PATIENT
  Age: 63 Year
  Sex: Male
  Weight: 102 kg

DRUGS (4)
  1. NEXIUM [Suspect]
     Route: 048
  2. DYCHOLIUM TABLET [Concomitant]
  3. HYDROCHLOROTHIAZIDE [Concomitant]
     Route: 048
  4. SECTRAL [Concomitant]

REACTIONS (5)
  - DIZZINESS [None]
  - ERUCTATION [None]
  - FEELING OF BODY TEMPERATURE CHANGE [None]
  - GALLBLADDER DISORDER [None]
  - MALAISE [None]
